FAERS Safety Report 23449004 (Version 1)
Quarter: 2024Q1

REPORT INFORMATION
  Report Type: Spontaneous
  Country: US (occurrence: US)
  Receive Date: 20240128
  Receipt Date: 20240128
  Transmission Date: 20240410
  Serious: No
  Sender: FDA-Public Use
  Company Number: US-BAUSCHBL-2024BNL000853

PATIENT
  Age: 86 Year
  Sex: Female
  Weight: 78 kg

DRUGS (1)
  1. XIIDRA [Suspect]
     Active Substance: LIFITEGRAST
     Indication: Dry eye
     Route: 047
     Dates: end: 20240116

REACTIONS (2)
  - Eye irritation [Not Recovered/Not Resolved]
  - Product use issue [Unknown]
